FAERS Safety Report 10185168 (Version 19)
Quarter: 2017Q1

REPORT INFORMATION
  Report Type: Report from Study
  Country: CA (occurrence: CA)
  Receive Date: 20140521
  Receipt Date: 20170201
  Transmission Date: 20170428
  Serious: Yes (Life-Threatening, Hospitalization, Other)
  Sender: FDA-Public Use
  Company Number: PHHY2014CA013520

PATIENT
  Age: 62 Year
  Sex: Female

DRUGS (4)
  1. SANDOSTATIN LAR DEPOT [Suspect]
     Active Substance: OCTREOTIDE ACETATE
     Indication: CARCINOID SYNDROME
     Dosage: 60 MG, EVERY 2 WEEKS
     Route: 030
     Dates: start: 20141205, end: 20150420
  2. SANDOSTATIN [Suspect]
     Active Substance: OCTREOTIDE ACETATE
     Indication: CARCINOID SYNDROME
     Route: 058
  3. SANDOSTATIN LAR DEPOT [Suspect]
     Active Substance: OCTREOTIDE ACETATE
     Indication: NEUROENDOCRINE CARCINOMA METASTATIC
     Dosage: 60 MG, EVERY 3 WEEKS
     Route: 030
     Dates: start: 20130823, end: 20141120
  4. SANDOSTATIN LAR DEPOT [Suspect]
     Active Substance: OCTREOTIDE ACETATE
     Dosage: 60 MG, EVERY WEEK
     Route: 030
     Dates: start: 20150427

REACTIONS (22)
  - Dehydration [Unknown]
  - Asthenia [Unknown]
  - Body temperature decreased [Unknown]
  - Blood pressure decreased [Recovering/Resolving]
  - Circulatory collapse [Unknown]
  - Haemoglobin decreased [Unknown]
  - Pharyngitis streptococcal [Unknown]
  - Hypersensitivity [Unknown]
  - Limb injury [Unknown]
  - Lip swelling [Unknown]
  - Blood pressure increased [Unknown]
  - Carcinoid crisis [Recovered/Resolved]
  - Swelling face [Unknown]
  - Blood pressure diastolic increased [Unknown]
  - Carcinoid crisis [Unknown]
  - Dizziness [Unknown]
  - Diarrhoea [Unknown]
  - Eye swelling [Unknown]
  - Inappropriate schedule of drug administration [Unknown]
  - Urinary incontinence [Unknown]
  - Dyspnoea [Recovering/Resolving]
  - Blood pressure systolic increased [Unknown]

NARRATIVE: CASE EVENT DATE: 20130823
